FAERS Safety Report 16770093 (Version 1)
Quarter: 2019Q3

REPORT INFORMATION
  Report Type: Spontaneous
  Country: US (occurrence: US)
  Receive Date: 20190904
  Receipt Date: 20190904
  Transmission Date: 20191005
  Serious: No
  Sender: FDA-Public Use
  Company Number: US-APOTEX-2018AP028502

PATIENT
  Age: 34 Year
  Sex: Male

DRUGS (2)
  1. EPLERENONE. [Suspect]
     Active Substance: EPLERENONE
     Dosage: 25 MG, UNK DAILY
     Route: 065
  2. EPLERENONE. [Suspect]
     Active Substance: EPLERENONE
     Indication: CHORIORETINOPATHY
     Dosage: 50 MG, UNK DAILY
     Route: 048

REACTIONS (3)
  - Polyuria [Unknown]
  - Off label use [Unknown]
  - Breast pain [Unknown]
